FAERS Safety Report 8236453-0 (Version None)
Quarter: 2012Q1

REPORT INFORMATION
  Report Type: 
  Country: None (occurrence: None)
  Receive Date: 20120327
  Receipt Date: 20120319
  Transmission Date: 20120608
  Serious: Yes (Hospitalization)
  Sender: FDA-Public Use
  Company Number: US-AMGEN-USASP2012017704

PATIENT
  Age: 77 Year
  Sex: Female

DRUGS (1)
  1. ENBREL [Suspect]
     Indication: RHEUMATOID ARTHRITIS
     Dosage: 50 MG, QWK
     Dates: start: 20021201

REACTIONS (10)
  - ARTHRALGIA [None]
  - PAIN IN EXTREMITY [None]
  - BLOOD CALCIUM DECREASED [None]
  - INTESTINAL MASS [None]
  - INJECTION SITE ERYTHEMA [None]
  - DYSPEPSIA [None]
  - OOPHORECTOMY [None]
  - SMALL INTESTINE OPERATION [None]
  - OVARIAN CYST [None]
  - BONE LOSS [None]
